FAERS Safety Report 21179860 (Version 4)
Quarter: 2022Q3

REPORT INFORMATION
  Report Type: Spontaneous
  Country: BA (occurrence: BA)
  Receive Date: 20220805
  Receipt Date: 20220910
  Transmission Date: 20221027
  Serious: Yes (Death, Other)
  Sender: FDA-Public Use
  Company Number: BA-009507513-2207BIH007914

PATIENT
  Age: 1 Year
  Sex: Female

DRUGS (2)
  1. M-M-RVAXPRO [Suspect]
     Active Substance: MEASLES VIRUS STRAIN ENDERS^ ATTENUATED EDMONSTON LIVE ANTIGEN\MUMPS VIRUS STRAIN B LEVEL JERYL LYNN
     Indication: Prophylaxis
     Route: 058
     Dates: start: 20220601
  2. STERILE DILUENT (WATER) [Suspect]
     Active Substance: WATER

REACTIONS (10)
  - Death [Fatal]
  - Multiple organ dysfunction syndrome [Unknown]
  - Cardiac failure [Unknown]
  - Seizure [Unknown]
  - Sepsis [Unknown]
  - Septic shock [Unknown]
  - Encephalitis [Unknown]
  - Alpha-1 antitrypsin deficiency [Unknown]
  - Vomiting [Unknown]
  - Fatigue [Unknown]

NARRATIVE: CASE EVENT DATE: 20220606
